FAERS Safety Report 10405564 (Version 3)
Quarter: 2016Q1

REPORT INFORMATION
  Report Type: Spontaneous
  Country: US (occurrence: US)
  Receive Date: 20140821
  Receipt Date: 20160323
  Transmission Date: 20160525
  Serious: Yes (Death, Other)
  Sender: FDA-Public Use
  Company Number: ADR-2014-01466

PATIENT
  Age: 55 Year
  Sex: Male

DRUGS (6)
  1. BACLOFEN. [Suspect]
     Active Substance: BACLOFEN
     Dosage: 74.84 MCG/DAY
     Route: 037
     Dates: start: 20140613
  2. BUPIVACAINE [Suspect]
     Active Substance: BUPIVACAINE
     Dosage: 4.0144 MG/DAY
     Route: 037
     Dates: end: 20140613
  3. DILAUDID [Suspect]
     Active Substance: HYDROMORPHONE HYDROCHLORIDE
     Dosage: 0.29959 MG/DAY
     Route: 037
     Dates: end: 20140613
  4. DILAUDID [Suspect]
     Active Substance: HYDROMORPHONE HYDROCHLORIDE
     Dosage: 0.37419 MG/DAY
     Route: 037
     Dates: start: 20140613
  5. BUPIVACAINE [Suspect]
     Active Substance: BUPIVACAINE
     Dosage: 5.0142 MG/DAY
     Route: 037
     Dates: start: 20140613
  6. BACLOFEN. [Suspect]
     Active Substance: BACLOFEN
     Dosage: 59.92 MCG/DAY
     Route: 037
     Dates: end: 20140613

REACTIONS (4)
  - Prostate cancer metastatic [Fatal]
  - Adverse drug reaction [Fatal]
  - Nausea [Fatal]
  - Vomiting [Fatal]
